FAERS Safety Report 8327206-3 (Version None)
Quarter: 2012Q2

REPORT INFORMATION
  Report Type: 
  Country: None (occurrence: None)
  Receive Date: 20120501
  Receipt Date: 20120416
  Transmission Date: 20120825
  Serious: Yes (Hospitalization)
  Sender: FDA-Public Use
  Company Number: US-BAXTER-2012BAX003094

PATIENT
  Sex: Female

DRUGS (3)
  1. DIANEAL [Suspect]
     Indication: PERITONEAL DIALYSIS
     Route: 033
     Dates: start: 20111024
  2. DIANEAL [Suspect]
     Route: 033
     Dates: start: 20111024
  3. DIANEAL [Suspect]
     Route: 033
     Dates: start: 20111024

REACTIONS (1)
  - BLOOD POTASSIUM INCREASED [None]
